FAERS Safety Report 19187117 (Version 1)
Quarter: 2021Q2

REPORT INFORMATION
  Report Type: Spontaneous
  Country: US (occurrence: US)
  Receive Date: 20210428
  Receipt Date: 20210428
  Transmission Date: 20210717
  Serious: No
  Sender: FDA-Public Use
  Company Number: US-BIOGEN-2021BI01005026

PATIENT
  Age: 51 Year
  Sex: Male
  Weight: 77.18 kg

DRUGS (4)
  1. KUDZU ROOT [Concomitant]
     Route: 065
  2. VUMERITY [Suspect]
     Active Substance: DIROXIMEL FUMARATE
     Indication: MULTIPLE SCLEROSIS
     Route: 048
  3. PHENYLEPH/CHLORPHEN/HYDROCODONE [Concomitant]
     Route: 065
  4. GLUTAMINE [Concomitant]
     Active Substance: GLUTAMINE
     Route: 065

REACTIONS (2)
  - Headache [Recovered/Resolved]
  - Cough [Recovered/Resolved]

NARRATIVE: CASE EVENT DATE: 20210419
